FAERS Safety Report 6019507-9 (Version None)
Quarter: 2008Q4

REPORT INFORMATION
  Report Type: 
  Country: None (occurrence: None)
  Receive Date: 20081224
  Receipt Date: 20081216
  Transmission Date: 20090506
  Serious: Yes (Death, Hospitalization, Other)
  Sender: FDA-Public Use
  Company Number: ES-SANOFI-SYNTHELABO-E125992

PATIENT
  Sex: Male
  Weight: 91 kg

DRUGS (3)
  1. CODEISAN [Concomitant]
     Dosage: UNK
     Route: 065
     Dates: start: 20010112, end: 20010115
  2. CAPECITABINE [Suspect]
     Route: 048
     Dates: end: 20010126
  3. OXALIPLATIN [Suspect]
     Indication: COLORECTAL CANCER
     Route: 042
     Dates: start: 20010112, end: 20010112

REACTIONS (3)
  - DEATH [None]
  - PULMONARY FIBROSIS [None]
  - RESPIRATORY FAILURE [None]
